FAERS Safety Report 6120660-7 (Version None)
Quarter: 2009Q1

REPORT INFORMATION
  Report Type: 
  Country: None (occurrence: None)
  Receive Date: 20090317
  Receipt Date: 20090312
  Transmission Date: 20090719
  Serious: Yes (Other)
  Sender: FDA-Public Use
  Company Number: PL-ABBOTT-09P-129-0562002-00

PATIENT
  Age: 50 Year
  Sex: Male

DRUGS (5)
  1. MERIDIA [Suspect]
     Indication: OBESITY
     Route: 048
     Dates: start: 20090216, end: 20090302
  2. DILTIAZEM [Concomitant]
     Indication: HYPERTENSION
     Route: 048
  3. DIOVAN [Concomitant]
     Indication: HYPERTENSION
     Route: 048
  4. PLAVIX [Concomitant]
     Indication: DRUG USE FOR UNKNOWN INDICATION
     Route: 048
  5. ASPIRIN [Concomitant]
     Indication: DRUG USE FOR UNKNOWN INDICATION
     Route: 048

REACTIONS (4)
  - BLOOD PRESSURE INCREASED [None]
  - INSOMNIA [None]
  - THIRST [None]
  - VISUAL IMPAIRMENT [None]
